FAERS Safety Report 13672210 (Version 5)
Quarter: 2017Q3

REPORT INFORMATION
  Report Type: Report from Study
  Country: JP (occurrence: JP)
  Receive Date: 20170620
  Receipt Date: 20170809
  Transmission Date: 20171127
  Serious: Yes (Hospitalization)
  Sender: FDA-Public Use
  Company Number: JP-B.I. PHARMACEUTICALS,INC./RIDGEFIELD-2017-NB-003374

PATIENT
  Age: 72 Year
  Sex: Male
  Weight: 65.2 kg

DRUGS (5)
  1. CODEINE PHOSPHATE HYDRATE [Concomitant]
     Active Substance: CODEINE PHOSPHATE
     Indication: IDIOPATHIC PULMONARY FIBROSIS
     Route: 065
  2. SOL-MELCORT [Concomitant]
     Active Substance: METHYLPREDNISOLONE SODIUM SUCCINATE
     Indication: IDIOPATHIC PULMONARY FIBROSIS
     Route: 065
     Dates: start: 20160506, end: 20160508
  3. CARBOCISTEINE [Concomitant]
     Active Substance: CARBOCYSTEINE
     Indication: IDIOPATHIC PULMONARY FIBROSIS
     Route: 065
  4. BIBF 1120 [Suspect]
     Active Substance: NINTEDANIB
     Indication: IDIOPATHIC PULMONARY FIBROSIS
     Route: 048
     Dates: start: 20160427, end: 20160506
  5. ULTIBRO [Concomitant]
     Active Substance: GLYCOPYRRONIUM\INDACATEROL
     Indication: IDIOPATHIC PULMONARY FIBROSIS
     Route: 065

REACTIONS (5)
  - Interstitial lung disease [Unknown]
  - Idiopathic pulmonary fibrosis [Unknown]
  - Idiopathic pulmonary fibrosis [Unknown]
  - Interstitial lung disease [Unknown]
  - Respiratory tract infection [Unknown]

NARRATIVE: CASE EVENT DATE: 20160505
